FAERS Safety Report 13115578 (Version 5)
Quarter: 2017Q2

REPORT INFORMATION
  Report Type: Spontaneous
  Country: FR (occurrence: FR)
  Receive Date: 20170114
  Receipt Date: 20170622
  Transmission Date: 20170830
  Serious: Yes (Other)
  Sender: FDA-Public Use
  Company Number: FR-009507513-1701FRA005660

PATIENT
  Age: 81 Year
  Sex: Male

DRUGS (2)
  1. PEMBROLIZUMAB. [Suspect]
     Active Substance: PEMBROLIZUMAB
     Indication: METASTATIC MALIGNANT MELANOMA
     Dosage: 10 MG/KG EVERY 3 WEEKS OR 2 MG/KG EVERY 2 WEEKS IN 3 CASES AND 11 INFUSIONS IN 1 CASE
     Route: 042
  2. PEMBROLIZUMAB. [Suspect]
     Active Substance: PEMBROLIZUMAB
     Dosage: 2 MG/KG, EVERY 2 WEEKS

REACTIONS (4)
  - Pneumonitis [Recovering/Resolving]
  - Interstitial lung disease [Recovering/Resolving]
  - Inappropriate schedule of drug administration [Unknown]
  - Organising pneumonia [Recovering/Resolving]
